FAERS Safety Report 8158109-5 (Version None)
Quarter: 2012Q1

REPORT INFORMATION
  Report Type: 
  Country: None (occurrence: None)
  Receive Date: 20120222
  Receipt Date: 20120221
  Transmission Date: 20120608
  Serious: Yes (Death)
  Sender: FDA-Public Use
  Company Number: PHHY2012IL012669

PATIENT
  Age: 65 Year
  Sex: Male

DRUGS (1)
  1. SEBIVO [Suspect]
     Indication: HEPATIC CIRRHOSIS
     Dosage: 600 MG, QD
     Route: 048

REACTIONS (1)
  - DEATH [None]
